FAERS Safety Report 6021394-X (Version None)
Quarter: 2008Q4

REPORT INFORMATION
  Report Type: 
  Country: None (occurrence: None)
  Receive Date: 20081229
  Receipt Date: 20081219
  Transmission Date: 20090506
  Serious: Yes (Hospitalization)
  Sender: FDA-Public Use
  Company Number: B0551254A

PATIENT
  Age: 83 Year
  Sex: Male

DRUGS (6)
  1. DEROXAT [Suspect]
     Indication: DEPRESSION
     Dosage: 20MG PER DAY
     Route: 048
     Dates: start: 20080601, end: 20081023
  2. LASILIX [Suspect]
     Indication: DRUG USE FOR UNKNOWN INDICATION
     Dosage: 20MG PER DAY
     Route: 048
     Dates: end: 20081023
  3. TRIATEC [Concomitant]
     Route: 065
  4. CARDENSIEL [Concomitant]
     Route: 065
  5. MONOTILDIEM LP [Concomitant]
     Route: 065
  6. DIFFU K [Concomitant]
     Route: 065

REACTIONS (3)
  - BLOOD OSMOLARITY DECREASED [None]
  - COGNITIVE DISORDER [None]
  - HYPONATRAEMIA [None]
